FAERS Safety Report 4625769-2 (Version None)
Quarter: 2005Q1

REPORT INFORMATION
  Report Type: 
  Country: None (occurrence: None)
  Receive Date: 20050330
  Receipt Date: 20050310
  Transmission Date: 20050727
  Serious: Yes (Life-Threatening)
  Sender: FDA-Public Use
  Company Number: JP_050306074

PATIENT
  Age: 80 Year
  Sex: Female

DRUGS (1)
  1. EVISTA [Suspect]
     Indication: OSTEOPOROSIS
     Dosage: 60 MG/1 DAY
     Dates: start: 20050110, end: 20050126

REACTIONS (4)
  - CEREBRAL INFARCTION [None]
  - CEREBRAL THROMBOSIS [None]
  - INTRACRANIAL VENOUS SINUS THROMBOSIS [None]
  - SIGHT DISABILITY [None]
